FAERS Safety Report 18983111 (Version 2)
Quarter: 2021Q1

REPORT INFORMATION
  Report Type: Spontaneous
  Country: US (occurrence: US)
  Receive Date: 20210308
  Receipt Date: 20210311
  Transmission Date: 20210420
  Serious: Yes (Death, Life-Threatening, Hospitalization, Disabling, Other)
  Sender: FDA-Public Use
  Company Number: US-ALXN-A202102840

PATIENT
  Age: 11 Year
  Sex: Female

DRUGS (2)
  1. SOLIRIS [Suspect]
     Active Substance: ECULIZUMAB
     Indication: THROMBOTIC MICROANGIOPATHY
     Dosage: 600 MG, UNK
     Route: 042
     Dates: start: 20210226, end: 20210228
  2. SOLIRIS [Suspect]
     Active Substance: ECULIZUMAB
     Indication: OFF LABEL USE

REACTIONS (4)
  - Ill-defined disorder [Fatal]
  - Sepsis [Fatal]
  - Off label use [Recovered/Resolved]
  - Condition aggravated [Fatal]

NARRATIVE: CASE EVENT DATE: 20210226
